FAERS Safety Report 5662334-2 (Version None)
Quarter: 2008Q1

REPORT INFORMATION
  Report Type: 
  Country: None (occurrence: None)
  Receive Date: 20080312
  Receipt Date: 20080303
  Transmission Date: 20080703
  Serious: Yes (Other)
  Sender: FDA-Public Use
  Company Number: US-PFIZER INC-2008020517

PATIENT
  Sex: Female
  Weight: 49 kg

DRUGS (13)
  1. CHANTIX [Suspect]
     Indication: SMOKING CESSATION THERAPY
  2. SKELAXIN [Concomitant]
  3. METHADONE HCL [Concomitant]
  4. ZYRTEC-D 12 HOUR [Concomitant]
  5. TOPAMAX [Concomitant]
  6. EFFEXOR [Concomitant]
  7. XANAX [Concomitant]
  8. LUNESTA [Concomitant]
  9. PREMARIN [Concomitant]
  10. ALLERGY MEDICATION [Concomitant]
  11. MYCILLIN [Concomitant]
  12. VAGISAN [Concomitant]
  13. NASONEX [Concomitant]

REACTIONS (6)
  - CONSTIPATION [None]
  - COORDINATION ABNORMAL [None]
  - FATIGUE [None]
  - FEELING ABNORMAL [None]
  - GAIT DISTURBANCE [None]
  - SOMNOLENCE [None]
